FAERS Safety Report 4430217-1 (Version None)
Quarter: 2004Q3

REPORT INFORMATION
  Report Type: 
  Country: None (occurrence: None)
  Receive Date: 20040817
  Receipt Date: 20040804
  Transmission Date: 20050211
  Serious: Yes (Other)
  Sender: FDA-Public Use
  Company Number: 2004053954

PATIENT
  Age: 76 Year
  Sex: Female

DRUGS (4)
  1. ZOLOFT [Suspect]
     Indication: DEPRESSION
     Dosage: 50 MG (50 MG, 1 IN 1 D), ORAL
     Route: 048
     Dates: start: 19950301
  2. GINKGO BILOBA EXTRACT (GINKGO BILOBA EXTRACT) [Concomitant]
  3. AMLODIPINE [Concomitant]
  4. SPIRONOLACTONE [Concomitant]

REACTIONS (5)
  - BALANCE DISORDER [None]
  - CARDIAC DISORDER [None]
  - DIZZINESS [None]
  - FALL [None]
  - HAND FRACTURE [None]
